FAERS Safety Report 5229139-8 (Version None)
Quarter: 2007Q1

REPORT INFORMATION
  Report Type: 
  Country: None (occurrence: None)
  Receive Date: 20061201
  Receipt Date: 20060913
  Transmission Date: 20070707
  Serious: No
  Sender: FDA-Public Use
  Company Number: US200609003079

PATIENT
  Age: 35 Year
  Sex: Female

DRUGS (1)
  1. CYMBALTA [Suspect]
     Indication: GASTRIC DISORDER
     Dosage: 20 MG
     Dates: start: 20060101, end: 20060101

REACTIONS (3)
  - DISTURBANCE IN ATTENTION [None]
  - MYDRIASIS [None]
  - NAUSEA [None]
